FAERS Safety Report 7719261-6 (Version None)
Quarter: 2011Q3

REPORT INFORMATION
  Report Type: 
  Country: None (occurrence: None)
  Receive Date: 20110825
  Receipt Date: 20110816
  Transmission Date: 20111222
  Serious: Yes (Life-Threatening, Hospitalization)
  Sender: FDA-Public Use
  Company Number: 2011S1000065

PATIENT
  Age: 55 Year
  Sex: Male

DRUGS (10)
  1. WELLBUTRIN [Concomitant]
  2. SOLU-MEDROL [Concomitant]
  3. AMALODIPINE [Concomitant]
  4. BENADRYL [Concomitant]
  5. HYDROCHLOROTHIAZIDE [Concomitant]
  6. KRYSTEXXA [Suspect]
     Indication: GOUT
     Dosage: 8 MG;X1; IV
     Route: 042
     Dates: start: 20110808, end: 20110808
  7. GLIPIZIDE [Concomitant]
  8. COLCHICINE [Concomitant]
  9. ATENOLOL [Concomitant]
  10. NAPROXEN (ALEVE) [Concomitant]

REACTIONS (4)
  - HAEMOGLOBIN DECREASED [None]
  - HAEMOLYSIS [None]
  - INFLUENZA LIKE ILLNESS [None]
  - DYSPNOEA [None]
